FAERS Safety Report 20575824 (Version 1)
Quarter: 2022Q1

REPORT INFORMATION
  Report Type: Report from Study
  Country: US (occurrence: US)
  Receive Date: 20220310
  Receipt Date: 20220310
  Transmission Date: 20220423
  Serious: Yes (Other)
  Sender: FDA-Public Use
  Company Number: US-NOVARTISPH-NVSC2022US053242

PATIENT
  Sex: Female

DRUGS (1)
  1. PIQRAY [Suspect]
     Active Substance: ALPELISIB
     Indication: Product used for unknown indication
     Dosage: UNK
     Route: 048

REACTIONS (7)
  - Skin cancer [Unknown]
  - Urine output increased [Unknown]
  - Polydipsia [Unknown]
  - Gait inability [Unknown]
  - Post procedural infection [Unknown]
  - Skin infection [Unknown]
  - Ageusia [Unknown]
